FAERS Safety Report 7622081-4 (Version None)
Quarter: 2011Q3

REPORT INFORMATION
  Report Type: 
  Country: None (occurrence: None)
  Receive Date: 20110720
  Receipt Date: 20101216
  Transmission Date: 20111222
  Serious: Yes (Other)
  Sender: FDA-Public Use
  Company Number: US-BAYER-201037435NA

PATIENT
  Age: 26 Year
  Sex: Female
  Weight: 64 kg

DRUGS (4)
  1. DROSPIRENONE AND ETHINYL ESTRADIOL [Suspect]
     Indication: PRODUCT USED FOR UNKNOWN INDICATION
     Route: 048
     Dates: start: 20060801, end: 20100215
  2. YASMIN [Suspect]
     Indication: PRODUCT USED FOR UNKNOWN INDICATION
     Route: 048
     Dates: start: 20060801, end: 20100215
  3. SINGULAIR [Concomitant]
     Indication: SEASONAL ALLERGY
  4. YAZ [Suspect]
     Indication: CONTRACEPTION
     Dosage: UNK UNK, UNK
     Route: 048
     Dates: start: 20060101

REACTIONS (5)
  - PAIN [None]
  - ABDOMINAL PAIN UPPER [None]
  - CHOLESTEROSIS [None]
  - CHOLELITHIASIS [None]
  - CHOLECYSTITIS CHRONIC [None]
